FAERS Safety Report 25530752 (Version 1)
Quarter: 2025Q3

REPORT INFORMATION
  Report Type: Spontaneous
  Country: EU (occurrence: EU)
  Receive Date: 20250708
  Receipt Date: 20250708
  Transmission Date: 20251021
  Serious: Yes (Life-Threatening, Hospitalization, Other)
  Sender: BRISTOL-MYERS SQUIBB COMPANY
  Company Number: None

PATIENT
  Age: 63 Year
  Sex: Male
  Weight: 64 kg

DRUGS (3)
  1. NIVOLUMAB [Suspect]
     Active Substance: NIVOLUMAB
     Indication: Pituitary tumour benign
     Route: 042
     Dates: start: 20241023, end: 20241226
  2. NIVOLUMAB [Suspect]
     Active Substance: NIVOLUMAB
     Route: 042
     Dates: start: 20250116, end: 20250116
  3. NELVUTAMIG [Suspect]
     Active Substance: NELVUTAMIG
     Indication: Pituitary tumour benign
     Route: 042
     Dates: start: 20241023, end: 20241226

REACTIONS (5)
  - Immune-mediated nephritis [Recovering/Resolving]
  - Immune-mediated myocarditis [Recovering/Resolving]
  - Conjunctivitis [Recovering/Resolving]
  - Immune-mediated encephalopathy [Recovering/Resolving]
  - Immune-mediated dermatitis [Recovering/Resolving]

NARRATIVE: CASE EVENT DATE: 20250121
